FAERS Safety Report 8482664-9 (Version None)
Quarter: 2012Q3

REPORT INFORMATION
  Report Type: 
  Country: None (occurrence: None)
  Receive Date: 20120702
  Receipt Date: 20120625
  Transmission Date: 20120928
  Serious: Yes (Hospitalization)
  Sender: FDA-Public Use
  Company Number: JP-MERCK-1206USA05350

PATIENT
  Age: 36 Year
  Sex: Male

DRUGS (1)
  1. JANUVIA [Suspect]
     Dosage: DAILY DOSAGE UNKNOWN
     Route: 048
     Dates: end: 20120618

REACTIONS (3)
  - FEELING ABNORMAL [None]
  - ALCOHOLIC PANCREATITIS [None]
  - DRUG INEFFECTIVE [None]
